FAERS Safety Report 21197789 (Version 1)
Quarter: 2022Q3

REPORT INFORMATION
  Report Type: Spontaneous
  Country: US (occurrence: None)
  Receive Date: 20220810
  Receipt Date: 20220810
  Transmission Date: 20221026
  Serious: Yes (Hospitalization)
  Sender: FDA-Public Use
  Company Number: US-ROCHE-3154710

PATIENT
  Sex: Female

DRUGS (1)
  1. ESBRIET [Suspect]
     Active Substance: PIRFENIDONE
     Indication: Idiopathic pulmonary fibrosis
     Route: 048
     Dates: start: 20170629

REACTIONS (5)
  - Pericardial effusion [Unknown]
  - Transient ischaemic attack [Unknown]
  - Nausea [Unknown]
  - Dizziness [Unknown]
  - Inner ear disorder [Unknown]
